FAERS Safety Report 4829609-8 (Version None)
Quarter: 2005Q4

REPORT INFORMATION
  Report Type: 
  Country: None (occurrence: None)
  Receive Date: 20051027
  Receipt Date: 20050103
  Transmission Date: 20060501
  Serious: Yes (Hospitalization, Other)
  Sender: FDA-Public Use
  Company Number: 200320400US

PATIENT
  Age: 60 Year
  Sex: Female
  Weight: 105 kg

DRUGS (43)
  1. ARAVA [Suspect]
     Indication: RHEUMATOID ARTHRITIS
     Dosage: 20 MG QD PO
     Route: 048
     Dates: start: 20001222, end: 20020410
  2. VIOXX [Concomitant]
  3. XANAX [Concomitant]
  4. CALCIUM CARBONATE (CALTRATE) [Concomitant]
  5. IRON [Concomitant]
  6. ISOSORBIDE DINITRATE (ISORDIL) [Concomitant]
  7. METOPROLOL TARTRATE (LOPRESSOR) [Concomitant]
  8. ASPIRIN [Concomitant]
  9. NITROGLYCERIN [Concomitant]
  10. PIOGLITAZONE HCL [Concomitant]
  11. FENTANYL (DURAGESIC) [Concomitant]
  12. PARACETAMOL, HYDROCODONE BITARTRATE (VICODIN) [Concomitant]
  13. SYNTHROID [Concomitant]
  14. ESTROGENS CONJUGATED (PREMARIN) [Concomitant]
  15. MINOCIN [Concomitant]
  16. ATIVAN [Concomitant]
  17. VITAMIN B-12 [Concomitant]
  18. TRICOR [Concomitant]
  19. PREDNISONE [Concomitant]
  20. BUSPAR [Concomitant]
  21. POTASSIUM [Concomitant]
  22. CELEXA [Concomitant]
  23. METHOTREXAE [Concomitant]
  24. INFLIXIMAB (REMICADE) [Concomitant]
  25. DOCUSATE SODIUM [Concomitant]
  26. PRILOSEC [Concomitant]
  27. GLIPIZIDE [Concomitant]
  28. NABUMETONE [Concomitant]
  29. ADALAT CC [Concomitant]
  30. AMITRIPTYLINE HCL [Concomitant]
  31. PAXIL [Concomitant]
  32. MULTI-VITAMIN [Concomitant]
  33. TIZANIDINE HYDROCHLORIDE (ZANAFLEX) [Concomitant]
  34. PARACETAMOL, HYDROCODONE BITARTRATE (NORCO) [Concomitant]
  35. METOPROLOL SUCCINATE [Concomitant]
  36. SIMVASTATIN [Concomitant]
  37. PREDNISONE [Concomitant]
  38. AVANDIA [Concomitant]
  39. DITROPAN [Concomitant]
  40. TRIAMCINOLONE HEXACETONIDE (TRIAMCINOLONE CREAM) [Concomitant]
  41. PROZAC [Concomitant]
  42. PARACETAMOL, HYDROCODONE BITARTRATE (LORTAB) [Concomitant]
  43. HYDROXYCHLOROQUINE SULFATE [Concomitant]

REACTIONS (24)
  - ABDOMINAL PAIN [None]
  - ABDOMINAL TENDERNESS [None]
  - ANAEMIA [None]
  - ASTHENIA [None]
  - BLOOD ALKALINE PHOSPHATASE INCREASED [None]
  - BLOOD GLUCOSE DECREASED [None]
  - DIARRHOEA [None]
  - DIZZINESS [None]
  - DYSPNOEA [None]
  - GASTROENTERITIS [None]
  - LIVER FUNCTION TEST ABNORMAL [None]
  - MIGRAINE [None]
  - NAUSEA [None]
  - OEDEMA [None]
  - PAIN IN EXTREMITY [None]
  - PNEUMONIA [None]
  - PYREXIA [None]
  - SKIN ULCER [None]
  - STOMATITIS [None]
  - TONGUE ULCERATION [None]
  - TOOTH INFECTION [None]
  - UPPER RESPIRATORY TRACT INFECTION [None]
  - URINARY TRACT INFECTION [None]
  - VOMITING [None]
